FAERS Safety Report 7700653-6 (Version None)
Quarter: 2011Q3

REPORT INFORMATION
  Report Type: 
  Country: None (occurrence: None)
  Receive Date: 20110822
  Receipt Date: 20110822
  Transmission Date: 20111222
  Serious: Yes (Other)
  Sender: FDA-Public Use
  Company Number: None

PATIENT
  Age: 37 Year
  Sex: Female
  Weight: 51.709 kg

DRUGS (2)
  1. DOXYCYCLINE HYCLATE [Suspect]
     Indication: SINUSITIS
     Dosage: 100MG TAB
     Route: 048
     Dates: start: 20110814, end: 20110818
  2. AVELOX [Concomitant]
     Indication: SINUSITIS
     Dosage: 400MG
     Route: 048
     Dates: start: 20110818, end: 20110818

REACTIONS (15)
  - DYSPNOEA [None]
  - PAIN [None]
  - PRURITUS [None]
  - MUSCLE FATIGUE [None]
  - NERVOUSNESS [None]
  - NO THERAPEUTIC RESPONSE [None]
  - THROAT TIGHTNESS [None]
  - INSOMNIA [None]
  - FEELING HOT [None]
  - SENSATION OF HEAVINESS [None]
  - ANXIETY [None]
  - RESTLESS LEGS SYNDROME [None]
  - SPEECH DISORDER [None]
  - ARTHRALGIA [None]
  - PERIPHERAL COLDNESS [None]
